FAERS Safety Report 4699561-7 (Version None)
Quarter: 2005Q2

REPORT INFORMATION
  Report Type: 
  Country: None (occurrence: None)
  Receive Date: 20050624
  Receipt Date: 20050613
  Transmission Date: 20051028
  Serious: Yes (Life-Threatening, Congenital Anomaly, Other)
  Sender: FDA-Public Use
  Company Number: 2005UW09022

PATIENT
  Age: 28642 Day
  Sex: Female
  Weight: 77.5 kg

DRUGS (8)
  1. IRESSA [Suspect]
     Route: 048
     Dates: start: 20050511, end: 20050607
  2. NORVASC [Concomitant]
     Indication: HYPERTENSION
     Route: 048
     Dates: start: 20000101
  3. IBESARTAN W/ HYDROCHLOROTHIAZIDE [Concomitant]
     Indication: HYPERTENSION
     Route: 048
     Dates: start: 20040101
  4. ROSUVASTATIN [Concomitant]
     Indication: HYPERCHOLESTEROLAEMIA
     Route: 048
     Dates: start: 20030101
  5. ACETYLSALICYLIC ACID SRT [Concomitant]
     Indication: PROPHYLAXIS
     Dosage: CARDIO-PROPHYLACTIC
     Route: 048
     Dates: start: 20020101
  6. RISEDRONATE SODIUM [Concomitant]
     Indication: OSTEOPOROSIS
     Route: 048
     Dates: start: 20030101
  7. BROMAZEPAM [Concomitant]
     Indication: INSOMNIA
     Route: 048
     Dates: start: 20040101
  8. TIOTROPIUM BROMIDE [Concomitant]
     Indication: BRONCHOSPASM
     Route: 045
     Dates: start: 20040701, end: 20050601

REACTIONS (9)
  - DRY SKIN [None]
  - FATIGUE [None]
  - HYPERTROPHIC OBSTRUCTIVE CARDIOMYOPATHY [None]
  - HYPOTENSION [None]
  - LUNG INFILTRATION [None]
  - POST PROCEDURAL COMPLICATION [None]
  - PRURITUS [None]
  - PULMONARY OEDEMA [None]
  - RESPIRATORY FAILURE [None]
